FAERS Safety Report 12771146 (Version 1)
Quarter: 2016Q3

REPORT INFORMATION
  Report Type: Spontaneous
  Country: DK (occurrence: DK)
  Receive Date: 20160922
  Receipt Date: 20160922
  Transmission Date: 20161109
  Serious: Yes (Hospitalization, Disabling, Other)
  Sender: FDA-Public Use
  Company Number: DK-PFIZER INC-2016435978

PATIENT
  Age: 43 Year
  Sex: Female
  Weight: 58 kg

DRUGS (4)
  1. HUMIRA [Concomitant]
     Active Substance: ADALIMUMAB
     Indication: CROHN^S DISEASE
     Dosage: UNK
     Dates: start: 2011
  2. SALAZOPYRIN EN-TABS [Suspect]
     Active Substance: SULFASALAZINE
     Indication: ARTHROPATHY
     Dosage: 1 G, 2X/DAY
     Route: 048
     Dates: start: 20151113, end: 20160720
  3. PANODIL [Concomitant]
     Active Substance: ACETAMINOPHEN
     Indication: PAIN
     Dosage: UNK
     Dates: start: 2014
  4. FOLIMET [Concomitant]
     Dosage: UNK
     Dates: start: 2011

REACTIONS (6)
  - Hepatotoxicity [Recovered/Resolved]
  - Lymphadenopathy [Unknown]
  - Polymorphic light eruption [Recovering/Resolving]
  - Pyrexia [Unknown]
  - Rash pruritic [Unknown]
  - Erythroblastosis [Unknown]

NARRATIVE: CASE EVENT DATE: 20160713
